FAERS Safety Report 16060769 (Version 3)
Quarter: 2019Q3

REPORT INFORMATION
  Report Type: Spontaneous
  Country: US (occurrence: US)
  Receive Date: 20190312
  Receipt Date: 20190719
  Transmission Date: 20191004
  Serious: No
  Sender: FDA-Public Use
  Company Number: US-ASTRAZENECA-2019SE29422

PATIENT
  Age: 25650 Day
  Sex: Male
  Weight: 112.5 kg

DRUGS (2)
  1. BYDUREON BCISE [Suspect]
     Active Substance: EXENATIDE
     Indication: TYPE 2 DIABETES MELLITUS
     Route: 058
     Dates: start: 2017
  2. METFORMIN [Concomitant]
     Active Substance: METFORMIN HYDROCHLORIDE
     Indication: TYPE 2 DIABETES MELLITUS
     Dosage: 500MG IN THE MORNING AND 1500 MG IN EVENING STARTING ABOUT 10 YEARS AGO, DOSE INCREASED
     Route: 048

REACTIONS (6)
  - Injection site haemorrhage [Unknown]
  - Intentional product misuse [Unknown]
  - Device issue [Unknown]
  - Injection site pain [Unknown]
  - Scab [Unknown]
  - Contusion [Unknown]

NARRATIVE: CASE EVENT DATE: 20190215
